FAERS Safety Report 4571136-X (Version None)
Quarter: 2005Q1

REPORT INFORMATION
  Report Type: 
  Country: None (occurrence: None)
  Receive Date: 20050202
  Receipt Date: 20040202
  Transmission Date: 20050727
  Serious: Yes (Death, Other)
  Sender: FDA-Public Use
  Company Number: 2004006691

PATIENT
  Age: 83 Year
  Sex: Female

DRUGS (4)
  1. AZITHROMYCIN [Suspect]
     Indication: PNEUMONIA
     Dosage: 500 MG (500 MG, 1 IN 1 D), INTRAVENOUS
     Route: 042
     Dates: start: 20040106, end: 20040107
  2. AZITHROMYCIN [Suspect]
     Dosage: 250 MG (250 MG,1 IN 1 D), ORAL
     Route: 048
     Dates: start: 20040108, end: 20040115
  3. ACETYLCYSTEINE [Concomitant]
  4. AMBROXOL HYDROCHLORIDE (AMBROXOL HYDROCHLORIDE) [Concomitant]

REACTIONS (1)
  - CONDITION AGGRAVATED [None]
